FAERS Safety Report 23585579 (Version 1)
Quarter: 2024Q1

REPORT INFORMATION
  Report Type: Report from Study
  Country: US (occurrence: US)
  Receive Date: 20240301
  Receipt Date: 20240301
  Transmission Date: 20240410
  Serious: Yes (Other)
  Sender: FDA-Public Use
  Company Number: US-GILEAD-2024-0663782

PATIENT
  Sex: Female

DRUGS (1)
  1. SACITUZUMAB GOVITECAN-HZIY [Suspect]
     Active Substance: SACITUZUMAB GOVITECAN-HZIY
     Indication: Breast cancer
     Dosage: 669 MG, OVER 1 HOUR ON DAYS 1 AND 8 EVERY 21 DAYS
     Route: 042
     Dates: start: 20240206

REACTIONS (5)
  - Mental impairment [Unknown]
  - Anxiety [Unknown]
  - Diarrhoea [Unknown]
  - Fatigue [Unknown]
  - Alopecia [Unknown]
